FAERS Safety Report 16351063 (Version 1)
Quarter: 2019Q2

REPORT INFORMATION
  Report Type: Spontaneous
  Country: US (occurrence: US)
  Receive Date: 20190524
  Receipt Date: 20190524
  Transmission Date: 20190711
  Serious: Yes (Other)
  Sender: FDA-Public Use
  Company Number: US-GLAXOSMITHKLINE-US2019091003

PATIENT
  Age: 1 Year
  Sex: Male

DRUGS (2)
  1. AQUAFRESH KIDS CAVITY PROTECTION [Suspect]
     Active Substance: SODIUM MONOFLUOROPHOSPHATE
     Indication: DENTAL CLEANING
     Dosage: UNK
     Dates: start: 20190517
  2. AQUAFRESH KIDS TOOTHBRUSH DENTAL INSERT (DEVICE) [Suspect]
     Active Substance: DEVICE
     Indication: DENTAL CLEANING
     Dosage: UNK
     Dates: start: 20190517

REACTIONS (7)
  - Choking [Unknown]
  - Accidental device ingestion by a child [Unknown]
  - Dyspnoea [Unknown]
  - Infantile spitting up [Unknown]
  - Crying [Unknown]
  - Product complaint [Unknown]
  - Retching [Unknown]

NARRATIVE: CASE EVENT DATE: 20190517
